FAERS Safety Report 15494122 (Version 6)
Quarter: 2019Q4

REPORT INFORMATION
  Report Type: Spontaneous
  Country: JP (occurrence: JP)
  Receive Date: 20181012
  Receipt Date: 20191115
  Transmission Date: 20200122
  Serious: Yes (Hospitalization, Other)
  Sender: FDA-Public Use
  Company Number: JP-PFIZER INC-2018404003

PATIENT
  Age: 12 Year
  Sex: Male
  Weight: 8.14 kg

DRUGS (1)
  1. GENOTROPIN [Suspect]
     Active Substance: SOMATROPIN
     Indication: DWARFISM
     Dosage: 0.23 MG/KG, 6 TIMES/WEEK
     Route: 042
     Dates: start: 20081202, end: 20171227

REACTIONS (1)
  - Diabetes mellitus [Recovering/Resolving]

NARRATIVE: CASE EVENT DATE: 20171227
